FAERS Safety Report 5800021-8 (Version None)
Quarter: 2008Q3

REPORT INFORMATION
  Report Type: 
  Country: None (occurrence: None)
  Receive Date: 20080703
  Receipt Date: 20080702
  Transmission Date: 20090109
  Serious: Yes (Hospitalization, Other)
  Sender: FDA-Public Use
  Company Number: DK-BRISTOL-MYERS SQUIBB COMPANY-14217053

PATIENT
  Age: 26 Year
  Sex: Male

DRUGS (13)
  1. TAXOL [Suspect]
     Indication: GERM CELL CANCER
     Dosage: AGAIN ADMINISTERED ON 21-MAY-2008. 1 DOSAGE FORM = 315 (NO UNITS SPECIFIED).
     Route: 042
     Dates: start: 20080515, end: 20080515
  2. BLEOMYCIN SULFATE [Suspect]
     Indication: GERM CELL CANCER
     Dosage: STARTED ON 15MAY08
     Route: 042
     Dates: start: 20080521, end: 20080521
  3. CISPLATIN [Suspect]
     Indication: GERM CELL CANCER
     Dosage: STARTED ON 15MAY08
     Route: 042
     Dates: start: 20080521, end: 20080521
  4. ETOPOSIDE [Suspect]
     Indication: GERM CELL CANCER
     Dosage: STARTED ON 15MAY08
     Route: 042
     Dates: start: 20080521, end: 20080521
  5. FRAGMIN [Suspect]
     Dates: start: 20080529
  6. SOLU-MEDROL [Concomitant]
     Dates: start: 20080515, end: 20080515
  7. ZANTAC [Concomitant]
     Dates: start: 20080515, end: 20080515
  8. TAVEGYL [Concomitant]
     Dates: start: 20080515, end: 20080515
  9. ROCEPHIN [Concomitant]
     Dates: start: 20080526, end: 20080531
  10. METRONIDAZOLE HCL [Concomitant]
     Dates: start: 20080526, end: 20080528
  11. PENICILLIN [Concomitant]
     Dates: start: 20080527, end: 20080602
  12. OXYNORM [Concomitant]
     Dates: start: 20080505
  13. ACETAMINOPHEN [Concomitant]

REACTIONS (6)
  - CYSTITIS [None]
  - DEEP VEIN THROMBOSIS [None]
  - DRUG HYPERSENSITIVITY [None]
  - FEBRILE NEUTROPENIA [None]
  - TONSILLITIS [None]
  - URINARY TRACT INFECTION [None]
